FAERS Safety Report 9226276 (Version 1)
Quarter: 2013Q2

REPORT INFORMATION
  Report Type: Spontaneous
  Country: US (occurrence: US)
  Receive Date: 20130411
  Receipt Date: 20130411
  Transmission Date: 20140414
  Serious: Yes (Life-Threatening, Hospitalization, Other)
  Sender: FDA-Public Use
  Company Number: US-B.I. PHARMACEUTICALS,INC./RIDGEFIELD-2013-BI-09277BP

PATIENT
  Age: 15 Year
  Sex: Female

DRUGS (12)
  1. CLONIDINE [Suspect]
     Indication: INSOMNIA
     Dosage: 0.1 MG
     Dates: end: 201301
  2. CLONIDINE [Suspect]
     Dosage: 0.5 MG
  3. KAPVAY [Suspect]
     Indication: AGGRESSION
     Dosage: 0.1 MG
     Dates: end: 20130105
  4. KAPVAY [Suspect]
     Indication: POST-TRAUMATIC STRESS DISORDER
     Dosage: 0.2 MG
     Dates: start: 20130106
  5. KAPVAY [Suspect]
     Indication: ANXIETY
  6. LAMICTAL [Concomitant]
  7. CONTRACEPTIVES [Concomitant]
  8. TRAZODONE HCL [Concomitant]
  9. MELATONIN [Concomitant]
  10. ADVAIR [Concomitant]
  11. LORATADINE [Concomitant]
  12. MULTIVITAMINS [Concomitant]

REACTIONS (9)
  - Mania [Unknown]
  - Suicide attempt [Unknown]
  - Electrocardiogram QT prolonged [Unknown]
  - Asthenia [Unknown]
  - Medication error [Unknown]
  - Dizziness [Unknown]
  - Decreased appetite [Unknown]
  - Hypotension [Unknown]
  - Off label use [Unknown]
